FAERS Safety Report 4731822-5 (Version None)
Quarter: 2005Q3

REPORT INFORMATION
  Report Type: 
  Country: None (occurrence: None)
  Receive Date: 20050802
  Receipt Date: 20050802
  Transmission Date: 20060218
  Serious: Yes (Hospitalization)
  Sender: FDA-Public Use
  Company Number: None

PATIENT
  Age: 32 Year
  Sex: Female
  Weight: 53.5244 kg

DRUGS (2)
  1. METADATE CD [Suspect]
     Indication: ATTENTION DEFICIT/HYPERACTIVITY DISORDER
     Dosage: 10 MG   1 CAPSUEL   ORAL
     Route: 048
     Dates: start: 20050422, end: 20050430
  2. MIRTAZAPINE [Concomitant]

REACTIONS (8)
  - DELIRIUM [None]
  - FEELING ABNORMAL [None]
  - HALLUCINATION, VISUAL [None]
  - HEART RATE INCREASED [None]
  - IRRITABILITY [None]
  - PAIN [None]
  - PANIC DISORDER [None]
  - VEIN DISORDER [None]
